FAERS Safety Report 24710234 (Version 1)
Quarter: 2024Q4

REPORT INFORMATION
  Report Type: Report from Study
  Country: US (occurrence: US)
  Receive Date: 20241209
  Receipt Date: 20241209
  Transmission Date: 20250115
  Serious: Yes (Other)
  Sender: ABBVIE
  Company Number: US-ABBVIE-5873770

PATIENT
  Age: 78 Year
  Sex: Female

DRUGS (3)
  1. HUMIRA [Suspect]
     Active Substance: ADALIMUMAB
     Indication: Rheumatoid arthritis
     Route: 058
     Dates: start: 20220801
  2. HUMIRA [Suspect]
     Active Substance: ADALIMUMAB
     Dosage: DRUG STOP DATE: 2024
     Route: 058
  3. HUMIRA [Suspect]
     Active Substance: ADALIMUMAB
     Dosage: DRUG START DATE: 2024
     Route: 058

REACTIONS (12)
  - Cataract [Recovered/Resolved]
  - Eye irritation [Not Recovered/Not Resolved]
  - Rash [Not Recovered/Not Resolved]
  - Erythema [Unknown]
  - Vein disorder [Unknown]
  - Pruritus [Unknown]
  - Surgery [Unknown]
  - Joint swelling [Not Recovered/Not Resolved]
  - Poor peripheral circulation [Unknown]
  - Medical device implantation [Unknown]
  - Fall [Unknown]
  - Foot deformity [Unknown]

NARRATIVE: CASE EVENT DATE: 20220101
